FAERS Safety Report 23126579 (Version 3)
Quarter: 2024Q1

REPORT INFORMATION
  Report Type: Report from Study
  Country: US (occurrence: US)
  Receive Date: 20231030
  Receipt Date: 20240229
  Transmission Date: 20240410
  Serious: Yes (Hospitalization, Other)
  Sender: FDA-Public Use
  Company Number: US-MYLANLABS-2023M1114387

PATIENT
  Age: 73 Year
  Sex: Male
  Weight: 99.79 kg

DRUGS (1)
  1. ATORVASTATIN [Suspect]
     Active Substance: ATORVASTATIN
     Indication: Product used for unknown indication
     Dosage: UNK
     Route: 065
     Dates: start: 20230911

REACTIONS (5)
  - Paralysis [Not Recovered/Not Resolved]
  - Suicidal ideation [Unknown]
  - Gait disturbance [Unknown]
  - Pain [Unknown]
  - Screaming [Unknown]

NARRATIVE: CASE EVENT DATE: 20231115
